FAERS Safety Report 16182540 (Version 3)
Quarter: 2023Q1

REPORT INFORMATION
  Report Type: Spontaneous
  Country: CA (occurrence: CA)
  Receive Date: 20190410
  Receipt Date: 20230126
  Transmission Date: 20230417
  Serious: Yes (Hospitalization, Other)
  Sender: FDA-Public Use
  Company Number: PHHY2019CA082760

PATIENT
  Sex: Male

DRUGS (40)
  1. ARIPIPRAZOLE [Suspect]
     Active Substance: ARIPIPRAZOLE
     Indication: Schizophrenia
     Dosage: 30 MG, UNK
     Route: 065
  2. HALOPERIDOL [Suspect]
     Active Substance: HALOPERIDOL
     Indication: Schizophrenia
     Dosage: 5 MG, UNK
     Route: 065
  3. HALOPERIDOL [Suspect]
     Active Substance: HALOPERIDOL
     Dosage: 5 MG, UNK
     Route: 065
  4. HALOPERIDOL [Suspect]
     Active Substance: HALOPERIDOL
     Dosage: UNK
     Route: 065
  5. LOXAPINE [Suspect]
     Active Substance: LOXAPINE
     Indication: Schizophrenia
     Dosage: 50 MG, UNK
     Route: 065
  6. LOXAPINE [Suspect]
     Active Substance: LOXAPINE
     Dosage: 75 MG, UNK
     Route: 065
  7. LOXAPINE [Suspect]
     Active Substance: LOXAPINE
     Dosage: 200 MG, UNK
     Route: 065
  8. LOXAPINE [Suspect]
     Active Substance: LOXAPINE
     Dosage: UNK
     Route: 065
  9. OLANZAPINE [Suspect]
     Active Substance: OLANZAPINE
     Indication: Schizophrenia
     Dosage: 20 MG, UNK
     Route: 065
  10. OLANZAPINE [Suspect]
     Active Substance: OLANZAPINE
     Dosage: 40 MG, UNK
     Route: 065
  11. OLANZAPINE [Suspect]
     Active Substance: OLANZAPINE
     Dosage: 15 MG, UNK
     Route: 065
  12. OLANZAPINE [Suspect]
     Active Substance: OLANZAPINE
     Dosage: UNK
     Route: 065
  13. QUETIAPINE FUMARATE [Suspect]
     Active Substance: QUETIAPINE FUMARATE
     Indication: Schizophrenia
     Dosage: 600 MG, UNK
     Route: 005
  14. RISPERIDONE [Suspect]
     Active Substance: RISPERIDONE
     Indication: Schizophrenia
     Dosage: 8 MG, UNK
     Route: 065
  15. RISPERIDONE [Suspect]
     Active Substance: RISPERIDONE
     Dosage: 3 MG, UNK
     Route: 065
  16. RISPERIDONE [Suspect]
     Active Substance: RISPERIDONE
     Dosage: 4 MG, UNK
     Route: 065
  17. CLOZAPINE [Suspect]
     Active Substance: CLOZAPINE
     Indication: Schizophrenia
     Dosage: 350 MG, QD
     Route: 065
  18. FLUOXETINE HYDROCHLORIDE [Suspect]
     Active Substance: FLUOXETINE HYDROCHLORIDE
     Indication: Schizophrenia
     Dosage: 80 MG, UNK
     Route: 065
  19. FLUPENTIXOL [Suspect]
     Active Substance: FLUPENTIXOL
     Indication: Schizophrenia
     Dosage: 6 MG, UNK
     Route: 065
  20. CITALOPRAM [Suspect]
     Active Substance: CITALOPRAM HYDROBROMIDE
     Indication: Schizophrenia
     Dosage: 80 MG, UNK
     Route: 065
  21. CITALOPRAM [Suspect]
     Active Substance: CITALOPRAM HYDROBROMIDE
     Dosage: UNK
     Route: 065
  22. AMISULPRIDE [Suspect]
     Active Substance: AMISULPRIDE
     Indication: Schizophrenia
     Dosage: 1200 MG, UNK
     Route: 065
  23. ASENAPINE MALEATE [Suspect]
     Active Substance: ASENAPINE MALEATE
     Indication: Schizophrenia
     Dosage: UNK
     Route: 065
  24. CLOMIPRAMINE [Suspect]
     Active Substance: CLOMIPRAMINE
     Indication: Schizophrenia
     Dosage: 250 MG, UNK
     Route: 065
  25. GABAPENTIN [Suspect]
     Active Substance: GABAPENTIN
     Indication: Schizophrenia
     Dosage: 1800 MG, UNK
     Route: 065
  26. GABAPENTIN [Suspect]
     Active Substance: GABAPENTIN
     Dosage: 600 MG, UNK
     Route: 065
  27. GABAPENTIN [Suspect]
     Active Substance: GABAPENTIN
     Dosage: UNK
     Route: 065
  28. LITHIUM CARBONATE [Suspect]
     Active Substance: LITHIUM CARBONATE
     Indication: Schizophrenia
     Dosage: 1050 MG, UNK
     Route: 065
  29. LITHIUM CARBONATE [Suspect]
     Active Substance: LITHIUM CARBONATE
     Dosage: 1800 MG, UNK
     Route: 065
  30. LITHIUM CARBONATE [Suspect]
     Active Substance: LITHIUM CARBONATE
     Dosage: 2400 MG, UNK
     Route: 065
  31. LITHIUM CARBONATE [Suspect]
     Active Substance: LITHIUM CARBONATE
     Dosage: UNK
     Route: 065
  32. PERPHENAZINE [Suspect]
     Active Substance: PERPHENAZINE
     Indication: Schizophrenia
     Dosage: UNK
     Route: 065
  33. PERPHENAZINE [Suspect]
     Active Substance: PERPHENAZINE
     Dosage: 32 MG, UNK
     Route: 065
  34. THIORIDAZINE [Suspect]
     Active Substance: THIORIDAZINE
     Indication: Schizophrenia
     Dosage: UNK
     Route: 048
  35. TRIFLUOPERAZINE [Suspect]
     Active Substance: TRIFLUOPERAZINE HYDROCHLORIDE
     Indication: Schizophrenia
     Dosage: 50 MG, UNK
     Route: 065
  36. TRIFLUOPERAZINE [Suspect]
     Active Substance: TRIFLUOPERAZINE HYDROCHLORIDE
     Dosage: UNK
     Route: 065
  37. ZIPRASIDONE HYDROCHLORIDE [Suspect]
     Active Substance: ZIPRASIDONE HYDROCHLORIDE
     Indication: Schizophrenia
     Dosage: 100 MG, UNK
     Route: 065
  38. SAPHRIS [Suspect]
     Active Substance: ASENAPINE MALEATE
     Indication: Schizophrenia
     Dosage: UNK
     Route: 065
  39. QUETIAPINE [Suspect]
     Active Substance: QUETIAPINE
     Indication: Schizophrenia
     Dosage: 600.0 MG
     Route: 048
  40. VALPROATE SODIUM [Concomitant]
     Active Substance: VALPROATE SODIUM
     Indication: Product used for unknown indication
     Dosage: UNK
     Route: 065

REACTIONS (20)
  - Dyslipidaemia [Unknown]
  - Disinhibition [Unknown]
  - Increased appetite [Unknown]
  - Euphoric mood [Unknown]
  - Suicide attempt [Unknown]
  - Toxicity to various agents [Unknown]
  - Obesity [Unknown]
  - Hypertension [Unknown]
  - Antipsychotic drug level below therapeutic [Unknown]
  - Akathisia [Unknown]
  - Obsessive-compulsive disorder [Unknown]
  - Weight increased [Unknown]
  - Leukopenia [Unknown]
  - Leukaemia [Unknown]
  - Prescribed overdose [Unknown]
  - Product use in unapproved indication [Unknown]
  - Therapeutic product effect variable [Unknown]
  - Therapeutic product effect incomplete [Unknown]
  - Therapeutic product effect incomplete [Unknown]
  - Drug ineffective [Unknown]
